FAERS Safety Report 23820917 (Version 1)
Quarter: 2024Q2

REPORT INFORMATION
  Report Type: Spontaneous
  Country: US (occurrence: None)
  Receive Date: 20240503
  Receipt Date: 20240503
  Transmission Date: 20240716
  Serious: Yes (Hospitalization)
  Sender: FDA-Public Use
  Company Number: None

PATIENT
  Age: 12 Month
  Sex: Female

DRUGS (2)
  1. TOBRAMYCIN [Suspect]
     Active Substance: TOBRAMYCIN\TOBRAMYCIN SULFATE
     Indication: Lung disorder
     Dosage: FREQUENCY : TWICE A DAY;?
     Route: 055
     Dates: start: 202402
  2. SYNAGIS SOLN [Concomitant]

REACTIONS (2)
  - COVID-19 [None]
  - Pneumonia [None]

NARRATIVE: CASE EVENT DATE: 20240401
